FAERS Safety Report 7386598-2 (Version None)
Quarter: 2011Q1

REPORT INFORMATION
  Report Type: 
  Country: None (occurrence: None)
  Receive Date: 20110323
  Receipt Date: 20110309
  Transmission Date: 20110831
  Serious: Yes (Other)
  Sender: FDA-Public Use
  Company Number: 2011MA002430

PATIENT
  Age: 72 Year
  Sex: Female

DRUGS (12)
  1. AMIODARONE [Concomitant]
  2. BETAMETHASONE [Concomitant]
  3. VALSARTAN [Concomitant]
  4. SIMVASTATIN [Concomitant]
  5. TRAMADOL HYDROCHLORIDE [Suspect]
  6. SIMVASTATIN [Concomitant]
  7. RABEPRAZOLE SODIUM [Concomitant]
  8. IBUPROFEN [Concomitant]
  9. AMIODARONE HCL [Concomitant]
  10. ASPIRIN [Concomitant]
  11. ASPIRIN [Concomitant]
  12. VALSARTAN [Concomitant]

REACTIONS (1)
  - AGEUSIA [None]
